FAERS Safety Report 6771359-5 (Version None)
Quarter: 2010Q2

REPORT INFORMATION
  Report Type: 
  Country: None (occurrence: None)
  Receive Date: 20100616
  Receipt Date: 20100611
  Transmission Date: 20101027
  Serious: Yes (Death, Life-Threatening, Hospitalization, Other)
  Sender: FDA-Public Use
  Company Number: M035714

PATIENT
  Age: 27 Year
  Sex: Female

DRUGS (2)
  1. CEENU [Suspect]
     Indication: ANAPLASTIC ASTROCYTOMA
     Route: 048
     Dates: start: 19930913, end: 19930919
  2. ZOFRAN [Concomitant]
     Dates: start: 19930913, end: 19930913

REACTIONS (12)
  - ABDOMINAL PAIN [None]
  - ACCIDENTAL OVERDOSE [None]
  - BONE MARROW FAILURE [None]
  - DISORIENTATION [None]
  - HEPATOTOXICITY [None]
  - ILEITIS [None]
  - MENTAL STATUS CHANGES [None]
  - MULTI-ORGAN FAILURE [None]
  - NEUROTOXICITY [None]
  - PANCYTOPENIA [None]
  - PULMONARY TOXICITY [None]
  - PYREXIA [None]
